FAERS Safety Report 5636982-X (Version None)
Quarter: 2008Q1

REPORT INFORMATION
  Report Type: 
  Country: None (occurrence: None)
  Receive Date: 20080225
  Receipt Date: 20070319
  Transmission Date: 20080703
  Serious: No
  Sender: FDA-Public Use
  Company Number: US-BRISTOL-MYERS SQUIBB COMPANY-13719174

PATIENT
  Age: 45 Year
  Sex: Female

DRUGS (1)
  1. GLUCOPHAGE [Suspect]
     Dates: start: 20070201

REACTIONS (2)
  - NAIL DISORDER [None]
  - PARAESTHESIA [None]
